FAERS Safety Report 17693220 (Version 2)
Quarter: 2020Q2

REPORT INFORMATION
  Report Type: Report from Study
  Country: None (occurrence: US)
  Receive Date: 20200422
  Receipt Date: 20200523
  Transmission Date: 20200714
  Serious: Yes (Hospitalization)
  Sender: FDA-Public Use
  Company Number: US-ABBVIE-20K-163-3358883-00

PATIENT
  Sex: Female

DRUGS (1)
  1. HUMIRA [Suspect]
     Active Substance: ADALIMUMAB
     Indication: PSORIASIS
     Route: 058
     Dates: end: 202003

REACTIONS (8)
  - Retching [Not Recovered/Not Resolved]
  - Balance disorder [Not Recovered/Not Resolved]
  - Vomiting [Not Recovered/Not Resolved]
  - Weight decreased [Not Recovered/Not Resolved]
  - Malnutrition [Not Recovered/Not Resolved]
  - Dizziness [Not Recovered/Not Resolved]
  - Unevaluable event [Not Recovered/Not Resolved]
  - Tremor [Not Recovered/Not Resolved]
